FAERS Safety Report 8822043 (Version 1)
Quarter: 2012Q4

REPORT INFORMATION
  Report Type: 
  Country: CO (occurrence: CO)
  Receive Date: 20121003
  Receipt Date: 20121003
  Transmission Date: 20130627
  Serious: Yes (Other)
  Sender: FDA-Public Use
  Company Number: CO-AMGEN-COLSP2012061607

PATIENT
  Age: 48 Year
  Sex: Female

DRUGS (7)
  1. ENBREL [Suspect]
     Indication: RHEUMATOID ARTHRITIS
     Dosage: 50 mg, weekly
     Route: 058
     Dates: start: 20120906
  2. METHOTREXATE [Concomitant]
     Indication: RHEUMATOID ARTHRITIS
     Dosage: 7 tablets each 7 days
     Route: 048
     Dates: start: 2005
  3. TRAMADOL [Concomitant]
     Indication: PAIN
     Dosage: 4 drops, 1x/day
     Route: 048
     Dates: start: 2005, end: 20120906
  4. TRAMADOL [Concomitant]
     Dosage: 10 drops three times for day
     Route: 048
     Dates: start: 20120906
  5. ACETAMINOPHEN [Concomitant]
     Indication: PAIN
     Dosage: 2 tablets three times for day of 250 mg
     Route: 048
     Dates: start: 2005
  6. FUROSEMIDE [Concomitant]
     Indication: POLLAKIURIA
     Dosage: 1 tablet in the morning, 1x/day
     Route: 048
  7. PREDNISOLON                        /00016201/ [Concomitant]
     Indication: RHEUMATOID ARTHRITIS
     Dosage: 3 tablets of 5 mg, 1x/day
     Route: 048
     Dates: start: 2005

REACTIONS (2)
  - Rheumatoid arthritis [Not Recovered/Not Resolved]
  - Drug ineffective [Not Recovered/Not Resolved]
